FAERS Safety Report 7902384-6 (Version None)
Quarter: 2011Q4

REPORT INFORMATION
  Report Type: 
  Country: None (occurrence: None)
  Receive Date: 20111108
  Receipt Date: 20111102
  Transmission Date: 20120403
  Serious: Yes (Hospitalization)
  Sender: FDA-Public Use
  Company Number: FR-PFIZER INC-2011267816

PATIENT
  Age: 57 Year
  Sex: Female

DRUGS (6)
  1. ARESTAL [Suspect]
     Dosage: 1 MG
     Route: 048
     Dates: end: 20110916
  2. ALPRAZOLAM [Suspect]
     Dosage: 0.25 MG, 2X/DAY
     Route: 048
     Dates: end: 20110916
  3. NOCTAMID [Suspect]
     Dosage: 3 MG, 1X/DAY
     Route: 048
     Dates: end: 20110916
  4. ATORVASTATIN CALCIUM [Suspect]
     Dosage: 40 MG, 1X/DAY
     Route: 048
     Dates: end: 20110927
  5. PROZAC [Suspect]
     Dosage: 20 MG, 1X/DAY
     Route: 048
     Dates: end: 20110916
  6. NAPHAZOLINE HCL [Suspect]
     Dosage: UNK
     Route: 048
     Dates: end: 20110916

REACTIONS (2)
  - ACUTE RESPIRATORY DISTRESS SYNDROME [None]
  - INTERSTITIAL LUNG DISEASE [None]
